FAERS Safety Report 19794849 (Version 1)
Quarter: 2021Q3

REPORT INFORMATION
  Report Type: Report from Study
  Country: CA (occurrence: CA)
  Receive Date: 20210906
  Receipt Date: 20210906
  Transmission Date: 20211014
  Serious: Yes (Hospitalization, Other)
  Sender: FDA-Public Use
  Company Number: NVSC2021CA198675

PATIENT
  Sex: Female

DRUGS (4)
  1. REVOLADE [Suspect]
     Active Substance: ELTROMBOPAG OLAMINE
     Indication: IMMUNE THROMBOCYTOPENIA
     Dosage: UNK MG
     Route: 048
  2. RITUXIMAB. [Suspect]
     Active Substance: RITUXIMAB
     Indication: POST TRANSPLANT LYMPHOPROLIFERATIVE DISORDER
     Dosage: MARCH 27 AND APRIL 1
     Route: 065
  3. RITUXIMAB. [Suspect]
     Active Substance: RITUXIMAB
     Indication: EPSTEIN-BARR VIRUS INFECTION REACTIVATION
  4. CYCLOSPORINE. [Suspect]
     Active Substance: CYCLOSPORINE
     Indication: PRODUCT USED FOR UNKNOWN INDICATION
     Route: 065

REACTIONS (10)
  - Product use in unapproved indication [Unknown]
  - Pancytopenia [Not Recovered/Not Resolved]
  - Gastrointestinal haemorrhage [Unknown]
  - Acute myeloid leukaemia [Unknown]
  - Epstein-Barr virus infection reactivation [Unknown]
  - Thrombocytopenia [Unknown]
  - BK virus infection [Unknown]
  - Cytomegalovirus viraemia [Unknown]
  - Bone marrow failure [Unknown]
  - Melaena [Unknown]
